FAERS Safety Report 24449240 (Version 2)
Quarter: 2024Q4

REPORT INFORMATION
  Report Type: Report from Study
  Country: CA (occurrence: CA)
  Receive Date: 20241017
  Receipt Date: 20241108
  Transmission Date: 20250114
  Serious: Yes (Other)
  Sender: NOVARTIS
  Company Number: CA-002147023-NVSC2024CA200889

PATIENT
  Age: 61 Year
  Sex: Female

DRUGS (1)
  1. KISQALI [Suspect]
     Active Substance: RIBOCICLIB
     Indication: Breast cancer metastatic
     Dosage: 600 MG
     Route: 048
     Dates: start: 20240911, end: 20240920

REACTIONS (8)
  - Renal impairment [Not Recovered/Not Resolved]
  - Diarrhoea [Unknown]
  - Dehydration [Recovering/Resolving]
  - Drug intolerance [Unknown]
  - Nausea [Recovered/Resolved]
  - Gait disturbance [Unknown]
  - Decreased appetite [Unknown]
  - Drug ineffective [Unknown]

NARRATIVE: CASE EVENT DATE: 20240920
